FAERS Safety Report 22124146 (Version 1)
Quarter: 2023Q1

REPORT INFORMATION
  Report Type: Spontaneous
  Country: PT (occurrence: PT)
  Receive Date: 20230322
  Receipt Date: 20230322
  Transmission Date: 20230418
  Serious: Yes (Other)
  Sender: FDA-Public Use
  Company Number: PT-002147023-NVSC2023PT049975

PATIENT
  Sex: Female

DRUGS (4)
  1. LETROZOLE [Suspect]
     Active Substance: LETROZOLE
     Indication: Metastases to central nervous system
     Dosage: UNK(FIRST LINE)
     Route: 065
  2. LETROZOLE [Suspect]
     Active Substance: LETROZOLE
     Indication: Metastases to bone
  3. PALBOCICLIB [Concomitant]
     Active Substance: PALBOCICLIB
     Indication: Metastases to bone
     Dosage: UNK (FIRST LINE)
     Route: 065
  4. PALBOCICLIB [Concomitant]
     Active Substance: PALBOCICLIB
     Indication: Metastases to central nervous system

REACTIONS (4)
  - Metastases to central nervous system [Unknown]
  - Malignant neoplasm progression [Unknown]
  - Metastases to bone [Unknown]
  - Off label use [Unknown]
